FAERS Safety Report 7721648-2 (Version None)
Quarter: 2011Q3

REPORT INFORMATION
  Report Type: 
  Country: None (occurrence: None)
  Receive Date: 20110831
  Receipt Date: 20110817
  Transmission Date: 20111222
  Serious: Yes (Other)
  Sender: FDA-Public Use
  Company Number: US-GLAXOSMITHKLINE-A0890105A

PATIENT
  Age: 54 Year
  Sex: Female

DRUGS (1)
  1. AVANDIA [Suspect]
     Indication: DIABETES MELLITUS
     Dosage: 4MG PER DAY
     Dates: start: 20010701, end: 20020601

REACTIONS (5)
  - REGURGITATION [None]
  - CARDIAC MURMUR [None]
  - ANAEMIA [None]
  - MITRAL VALVE PROLAPSE [None]
  - CARDIAC FAILURE CONGESTIVE [None]
